FAERS Safety Report 18523652 (Version 1)
Quarter: 2020Q4

REPORT INFORMATION
  Report Type: Spontaneous
  Country: FR (occurrence: FR)
  Receive Date: 20201119
  Receipt Date: 20201119
  Transmission Date: 20210114
  Serious: Yes (Other)
  Sender: FDA-Public Use
  Company Number: NVSC2020FR309269

PATIENT
  Age: 14 Year
  Sex: Male
  Weight: 69 kg

DRUGS (10)
  1. SULFAMETHOXAZOLE [Concomitant]
     Active Substance: SULFAMETHOXAZOLE
     Indication: NEPHROTIC SYNDROME
     Dosage: 800 MG, QW
     Route: 065
  2. OBINUTUZUMAB. [Suspect]
     Active Substance: OBINUTUZUMAB
     Indication: NEPHROTIC SYNDROME
     Dosage: 900 MG (1000 MG/1.73 M2  OVER 4 H WAS INJECTED AT DAY 0)
     Route: 042
  3. ACETAMINOPHEN. [Concomitant]
     Active Substance: ACETAMINOPHEN
     Indication: NEPHROTIC SYNDROME
     Dosage: 15 MG/KG
     Route: 065
  4. DEXCHLORPHENIRAMINE [Concomitant]
     Active Substance: DEXCHLORPHENIRAMINE
     Indication: NEPHROTIC SYNDROME
     Dosage: 2.5 MG BELOW 30 KGBWAND 5 MG OVER 30 KGBW
     Route: 065
  5. PREDNISONE. [Suspect]
     Active Substance: PREDNISONE
     Indication: NEPHROTIC SYNDROME
     Dosage: 20 MG, QD
     Route: 065
  6. METHYLPREDNISOLONE. [Suspect]
     Active Substance: METHYLPREDNISOLONE
     Indication: NEPHROTIC SYNDROME
     Dosage: 1 MG/KG
     Route: 065
  7. PREDNISONE. [Suspect]
     Active Substance: PREDNISONE
     Dosage: 30 MG/M2 (EVERY OTHER DAY)
     Route: 065
  8. DARATUMUMAB [Suspect]
     Active Substance: DARATUMUMAB
     Indication: NEPHROTIC SYNDROME
     Dosage: 900 MG (1000 MG/1.73 M2 OVER 4 H)
     Route: 065
  9. PREDNISONE. [Suspect]
     Active Substance: PREDNISONE
     Dosage: 60 MG/M2 (EVERY OTHER DAY FOR 2 WEEKS)
     Route: 065
  10. TACROLIMUS. [Suspect]
     Active Substance: TACROLIMUS
     Indication: NEPHROTIC SYNDROME
     Dosage: UNK
     Route: 065

REACTIONS (4)
  - Off label use [Unknown]
  - Blood immunoglobulin G decreased [Unknown]
  - Epstein-Barr virus infection [Unknown]
  - Neutropenia [Unknown]
